FAERS Safety Report 5499052-X (Version None)
Quarter: 2007Q4

REPORT INFORMATION
  Report Type: 
  Country: None (occurrence: None)
  Receive Date: 20071026
  Receipt Date: 20070523
  Transmission Date: 20080405
  Serious: No
  Sender: FDA-Public Use
  Company Number: A0652629A

PATIENT
  Age: 55 Year
  Sex: Male

DRUGS (12)
  1. ADVAIR DISKUS 100/50 [Suspect]
     Indication: ASTHMA
     Dosage: 1PUFF TWICE PER DAY
     Route: 055
     Dates: start: 20040101
  2. SPIRIVA [Concomitant]
  3. PROVENTIL [Concomitant]
  4. NEBULIZER [Concomitant]
  5. DEPAKOTE [Concomitant]
  6. CLONOPIN [Concomitant]
  7. SEROQUEL [Concomitant]
  8. NEURONTIN [Concomitant]
  9. ACCOLATE [Concomitant]
  10. IBUPROFEN [Concomitant]
  11. SOLAXIN [Concomitant]
  12. COMBIVENT [Concomitant]

REACTIONS (4)
  - CHEST DISCOMFORT [None]
  - DRUG INEFFECTIVE [None]
  - DYSPNOEA [None]
  - PAIN [None]
